FAERS Safety Report 17700879 (Version 2)
Quarter: 2020Q3

REPORT INFORMATION
  Report Type: Spontaneous
  Country: US (occurrence: US)
  Receive Date: 20200424
  Receipt Date: 20200706
  Transmission Date: 20201102
  Serious: Yes (Other)
  Sender: FDA-Public Use
  Company Number: US-INCYTE CORPORATION-2020IN003778

PATIENT

DRUGS (1)
  1. JAKAFI [Suspect]
     Active Substance: RUXOLITINIB
     Dosage: 5 MILLIGRAM, BID
     Route: 048
     Dates: start: 20200128

REACTIONS (7)
  - Tooth disorder [Unknown]
  - Vomiting [Unknown]
  - Oral infection [Unknown]
  - Anxiety [Unknown]
  - Dizziness [Unknown]
  - Neoplasm malignant [Unknown]
  - Nausea [Unknown]

NARRATIVE: CASE EVENT DATE: 202004
